FAERS Safety Report 12857055 (Version 2)
Quarter: 2016Q4

REPORT INFORMATION
  Report Type: Spontaneous
  Country: JP (occurrence: JP)
  Receive Date: 20161018
  Receipt Date: 20161117
  Transmission Date: 20170207
  Serious: Yes (Death, Other)
  Sender: FDA-Public Use
  Company Number: JP-ASTELLAS-2016US040275

PATIENT
  Age: 54 Year
  Sex: Female

DRUGS (1)
  1. TARCEVA [Suspect]
     Active Substance: ERLOTINIB HYDROCHLORIDE
     Indication: LUNG ADENOCARCINOMA
     Dosage: UNK, UNKNOWN FREQ.
     Route: 048
     Dates: start: 2011

REACTIONS (4)
  - Corneal disorder [Recovering/Resolving]
  - Corneal perforation [Not Recovered/Not Resolved]
  - Malignant neoplasm progression [Fatal]
  - Corneal epithelium defect [Recovering/Resolving]
